FAERS Safety Report 5023134-X (Version None)
Quarter: 2006Q2

REPORT INFORMATION
  Report Type: 
  Country: None (occurrence: None)
  Receive Date: 20060605
  Receipt Date: 20041203
  Transmission Date: 20061013
  Serious: Yes (Life-Threatening)
  Sender: FDA-Public Use
  Company Number: 200413505JP

PATIENT
  Age: 82 Year
  Sex: Male

DRUGS (7)
  1. KETEK [Suspect]
     Indication: PNEUMONIA
     Dosage: 600 MG/DAY PO
     Route: 048
     Dates: start: 20041113, end: 20041115
  2. ENALAPRIL MALEATE [Concomitant]
  3. LASIX [Concomitant]
  4. ACETYLSALICYLIC ACID (BAYASPIRIN) [Concomitant]
  5. ALLOPURINOL (ALOSITOL) [Concomitant]
  6. GLYCERYL TRINITRATE (NITRODERM TTS) [Concomitant]
  7. SENNA LEAF (PURSENNID) [Concomitant]

REACTIONS (10)
  - AMMONIA INCREASED [None]
  - BLOOD CREATININE INCREASED [None]
  - BLOOD UREA INCREASED [None]
  - COMA [None]
  - DEPRESSED LEVEL OF CONSCIOUSNESS [None]
  - EJECTION FRACTION DECREASED [None]
  - HEPATITIS FULMINANT [None]
  - INTERNATIONAL NORMALISED RATIO INCREASED [None]
  - LIVER DISORDER [None]
  - PLEURAL EFFUSION [None]
